FAERS Safety Report 10515303 (Version 2)
Quarter: 2014Q4

REPORT INFORMATION
  Report Type: Spontaneous
  Country: US (occurrence: US)
  Receive Date: 20141014
  Receipt Date: 20141014
  Transmission Date: 20150528
  Serious: Yes (Other)
  Sender: FDA-Public Use
  Company Number: US-AUROBINDO PHARMA GMBH-AUR-APU-2014-06598

PATIENT
  Sex: Male

DRUGS (1)
  1. METFORMIN HYDROCHLORIDE TABLETS USP 1000 MG [Suspect]
     Active Substance: METFORMIN HYDROCHLORIDE
     Indication: DIABETES MELLITUS
     Dosage: 1 DF, TWO TIMES A DAY
     Route: 065
     Dates: start: 20140604, end: 20140614

REACTIONS (3)
  - Blood glucose increased [Recovered/Resolved]
  - Product substitution issue [Recovered/Resolved]
  - Drug ineffective [Recovered/Resolved]
